FAERS Safety Report 8783118 (Version 1)
Quarter: 2012Q4

REPORT INFORMATION
  Report Type: Report from Study
  Country: GB (occurrence: GB)
  Receive Date: 20120913
  Receipt Date: 20120913
  Transmission Date: 20130627
  Serious: Yes (Other)
  Sender: FDA-Public Use
  Company Number: GB-JNJFOC-20120901383

PATIENT
  Age: 85 Year
  Sex: Male
  Weight: 70.1 kg

DRUGS (11)
  1. USTEKINUMAB [Suspect]
     Indication: PSORIASIS
     Route: 058
     Dates: start: 20120430
  2. ASPIRIN [Concomitant]
     Route: 065
     Dates: start: 20040101
  3. CLOPIDOGREL [Concomitant]
     Route: 065
     Dates: start: 20040101
  4. FOLIC ACID [Concomitant]
     Route: 065
     Dates: start: 20040101
  5. SODIUM BICARBONATE [Concomitant]
     Route: 065
     Dates: start: 20040101
  6. GLICLAZIDE [Concomitant]
     Route: 065
     Dates: start: 20020101
  7. RANITIDINE [Concomitant]
     Route: 065
     Dates: start: 20020101
  8. SIMVASTATIN [Concomitant]
     Route: 065
     Dates: start: 20020101
  9. IRBESARTAN [Concomitant]
     Route: 065
     Dates: start: 20020101
  10. ISOSORBIDE MONONITRATE [Concomitant]
     Route: 065
     Dates: start: 20070101
  11. NOVOMIX [Concomitant]
     Route: 065
     Dates: start: 20050101

REACTIONS (2)
  - Keratoacanthoma [Recovered/Resolved]
  - Squamous cell carcinoma [Recovered/Resolved]
